FAERS Safety Report 14707232 (Version 1)
Quarter: 2018Q2

REPORT INFORMATION
  Report Type: Spontaneous
  Country: US (occurrence: US)
  Receive Date: 20180403
  Receipt Date: 20180403
  Transmission Date: 20180711
  Serious: No
  Sender: FDA-Public Use
  Company Number: US-BRISTOL-MYERS SQUIBB COMPANY-BMS-2018-029509

PATIENT
  Sex: Female

DRUGS (1)
  1. SPRYCEL [Suspect]
     Active Substance: DASATINIB
     Indication: LYMPHOCYTOSIS
     Dosage: 1 TAB, QD
     Route: 048
     Dates: start: 201608

REACTIONS (2)
  - Product use in unapproved indication [Unknown]
  - Drug dose omission [Unknown]
